FAERS Safety Report 12142515 (Version 3)
Quarter: 2016Q1

REPORT INFORMATION
  Report Type: Spontaneous
  Country: US (occurrence: None)
  Receive Date: 20160303
  Receipt Date: 20160316
  Transmission Date: 20160526
  Serious: Yes (Hospitalization, Other)
  Sender: FDA-Public Use
  Company Number: US-MDT-ADR-2016-00235

PATIENT
  Age: 47 Year
  Sex: Male

DRUGS (1)
  1. LIORESAL [Suspect]
     Active Substance: BACLOFEN
     Indication: MUSCLE SPASTICITY
     Dosage: 1299.8MCG/DAY

REACTIONS (18)
  - No therapeutic response [None]
  - Muscle spasms [None]
  - Oedema peripheral [None]
  - Device occlusion [None]
  - Blood pressure increased [None]
  - Respiratory distress [None]
  - Subcutaneous abscess [None]
  - Muscle tightness [None]
  - Musculoskeletal stiffness [None]
  - Urinary retention [None]
  - Dyspnoea [None]
  - Abdominal distension [None]
  - Urinary incontinence [None]
  - Device kink [None]
  - Performance status decreased [None]
  - Heart rate increased [None]
  - Hypertonia [None]
  - Bladder dilatation [None]
